FAERS Safety Report 9517265 (Version 1)
Quarter: 2013Q1

REPORT INFORMATION
  Report Type: Spontaneous
  Country: US (occurrence: None)
  Receive Date: 20130305
  Receipt Date: 20130305
  Transmission Date: 20140127
  Serious: Yes (Other)
  Sender: FDA-Public Use
  Company Number: 163-21880-12031144

PATIENT
  Age: 66 Year
  Sex: Female

DRUGS (1)
  1. REVLIMID (LENALIDOMIDE) (25 MILLIGRAM, CAPSULES) [Suspect]
     Indication: PLASMA CELL MYELOMA
     Dosage: DAILY ON DAYS 1-21 AND OFF FOR 7 DAYS
     Route: 048
     Dates: start: 20111013

REACTIONS (2)
  - Impaired healing [None]
  - Coagulation time prolonged [None]
